FAERS Safety Report 8422763-0 (Version None)
Quarter: 2012Q2

REPORT INFORMATION
  Report Type: 
  Country: None (occurrence: None)
  Receive Date: 20120608
  Receipt Date: 20120601
  Transmission Date: 20120825
  Serious: Yes (Hospitalization, Disabling, Other)
  Sender: FDA-Public Use
  Company Number: US-MERCK-1112USA01091

PATIENT
  Age: 51 Year
  Sex: Female
  Weight: 81 kg

DRUGS (4)
  1. CALCIUM (UNSPECIFIED) [Concomitant]
     Indication: OSTEOPENIA
     Route: 065
     Dates: start: 20020101
  2. VITAMIN D (UNSPECIFIED) [Concomitant]
     Indication: OSTEOPENIA
     Route: 065
     Dates: start: 20020101
  3. FOSAMAX [Suspect]
     Indication: OSTEOPENIA
     Route: 048
     Dates: start: 20020101, end: 20070401
  4. BONIVA [Suspect]
     Indication: OSTEOPENIA
     Route: 048
     Dates: start: 20070501, end: 20100401

REACTIONS (30)
  - HAEMORRHAGIC ANAEMIA [None]
  - SINUS BRADYCARDIA [None]
  - RASH [None]
  - PSORIATIC ARTHROPATHY [None]
  - OSTEOPOROSIS [None]
  - FATIGUE [None]
  - INCISIONAL DRAINAGE [None]
  - OSTEOARTHRITIS [None]
  - ATTENTION DEFICIT/HYPERACTIVITY DISORDER [None]
  - BLISTER [None]
  - DENTAL NECROSIS [None]
  - FRACTURE NONUNION [None]
  - ADVERSE DRUG REACTION [None]
  - DERMATITIS CONTACT [None]
  - BURSITIS [None]
  - TOOTH FRACTURE [None]
  - BUNION [None]
  - FALL [None]
  - UTERINE DISORDER [None]
  - MUSCLE SPASMS [None]
  - ACUTE MYOCARDIAL INFARCTION [None]
  - VENTRICULAR ARRHYTHMIA [None]
  - FEMUR FRACTURE [None]
  - LOW TURNOVER OSTEOPATHY [None]
  - BACK PAIN [None]
  - CONTUSION [None]
  - IMPAIRED HEALING [None]
  - RHEUMATOID ARTHRITIS [None]
  - OBESITY [None]
  - CORONARY ARTERY DISEASE [None]
